FAERS Safety Report 7551137-X (Version None)
Quarter: 2011Q2

REPORT INFORMATION
  Report Type: 
  Country: None (occurrence: None)
  Receive Date: 20110616
  Receipt Date: 20110614
  Transmission Date: 20111010
  Serious: Yes (Hospitalization, Other)
  Sender: FDA-Public Use
  Company Number: JP-PFIZER INC-2011091620

PATIENT
  Age: 66 Year
  Sex: Female
  Weight: 65 kg

DRUGS (15)
  1. CELECOXIB [Suspect]
     Indication: ANALGESIC THERAPY
     Dosage: 200 MG, DAILY
     Route: 048
     Dates: start: 20110321, end: 20110414
  2. METHYCOBAL [Concomitant]
     Dosage: UNK
     Route: 048
     Dates: start: 20110406
  3. FERROUS CITRATE [Concomitant]
     Dosage: UNK
     Route: 048
     Dates: start: 20110225, end: 20110326
  4. NEUROTROPIN [Concomitant]
     Dosage: UNK
     Route: 051
     Dates: start: 20110407, end: 20110416
  5. CEFOTIAM HYDROCHLORIDE [Suspect]
     Indication: INFECTION PROPHYLAXIS
     Dosage: 1 G, 2X/DAY
     Route: 041
     Dates: start: 20110316, end: 20110424
  6. FAMOTIDINE [Suspect]
     Indication: PROPHYLAXIS AGAINST GASTROINTESTINAL ULCER
     Dosage: UNK
     Route: 042
     Dates: start: 20110316, end: 20110316
  7. ZOLPIDEM [Suspect]
     Indication: INSOMNIA
     Dosage: 10 MG, UID/DAILY
     Route: 048
     Dates: start: 20110315
  8. NORVASC [Concomitant]
     Dosage: UNK
     Route: 048
     Dates: start: 20110314
  9. SELBEX [Concomitant]
     Dosage: UNK
     Route: 048
     Dates: start: 20110314
  10. ENOXAPARIN SODIUM [Concomitant]
     Indication: THROMBOSIS PROPHYLAXIS
     Dosage: UNK
     Route: 051
     Dates: start: 20040321, end: 20110322
  11. FAMOTIDINE [Suspect]
     Dosage: 20 MG, 2X/DAY
     Route: 048
     Dates: start: 20110321, end: 20110414
  12. FLOMAX [Concomitant]
     Dosage: UNK
     Route: 048
     Dates: start: 20110403, end: 20110427
  13. KETOPROFEN [Concomitant]
     Dosage: UNK
     Route: 050
     Dates: start: 20110225
  14. LOXONIN [Concomitant]
     Dosage: UNK
     Route: 048
     Dates: start: 20110314
  15. VOLTAREN [Concomitant]
     Dosage: UNK
     Route: 054
     Dates: start: 20110321, end: 20110322

REACTIONS (5)
  - LIVER FUNCTION TEST ABNORMAL [None]
  - HEPATIC FUNCTION ABNORMAL [None]
  - POST PROCEDURAL INFECTION [None]
  - DISSEMINATED INTRAVASCULAR COAGULATION [None]
  - PANCYTOPENIA [None]
